FAERS Safety Report 10641660 (Version 1)
Quarter: 2014Q4

REPORT INFORMATION
  Report Type: Spontaneous
  Country: GB (occurrence: GB)
  Receive Date: 20141209
  Receipt Date: 20141209
  Transmission Date: 20150529
  Serious: Yes (Other)
  Sender: FDA-Public Use
  Company Number: GB-BAYER-2014-179362

PATIENT
  Age: 43 Year
  Sex: Female
  Weight: 60 kg

DRUGS (5)
  1. CANESTEN COMBI PESSARY + CREAM [Suspect]
     Active Substance: CLOTRIMAZOLE
     Indication: VULVOVAGINAL CANDIDIASIS
     Dosage: UNK
     Route: 061
     Dates: start: 20140801, end: 20140930
  2. CANESTEN ORAL CAPSULE [Suspect]
     Active Substance: FLUCONAZOLE
     Indication: VULVOVAGINAL CANDIDIASIS
     Dosage: UNK
     Route: 048
     Dates: start: 20140801, end: 20140930
  3. MERCAPTOPURINE. [Concomitant]
     Active Substance: MERCAPTOPURINE
  4. BUDESONIDE. [Concomitant]
     Active Substance: BUDESONIDE
  5. CANESTEN COMBI PESSARY + CREAM [Suspect]
     Active Substance: CLOTRIMAZOLE
     Indication: VULVOVAGINAL CANDIDIASIS
     Dosage: UNK
     Route: 067
     Dates: start: 20140801, end: 20140930

REACTIONS (2)
  - Vulvovaginal pain [None]
  - Vulvovaginal discomfort [Recovered/Resolved]

NARRATIVE: CASE EVENT DATE: 20140901
